FAERS Safety Report 12738609 (Version 1)
Quarter: 2016Q3

REPORT INFORMATION
  Report Type: Spontaneous
  Country: US (occurrence: US)
  Receive Date: 20160912
  Receipt Date: 20160912
  Transmission Date: 20161109
  Serious: Yes (Life-Threatening, Hospitalization, Disabling)
  Sender: FDA-Public Use
  Company Number: None

PATIENT
  Age: 34 Year
  Sex: Female
  Weight: 90 kg

DRUGS (13)
  1. TOPAMAX [Concomitant]
     Active Substance: TOPIRAMATE
  2. GAMASTAN S/D [Suspect]
     Active Substance: HUMAN IMMUNOGLOBULIN A\HUMAN IMMUNOGLOBULIN G
     Indication: INFECTION PROPHYLAXIS
     Route: 030
     Dates: start: 20160527, end: 20160829
  3. SYNTHROID [Concomitant]
     Active Substance: LEVOTHYROXINE SODIUM
  4. CELEBREX [Concomitant]
     Active Substance: CELECOXIB
  5. KEPPRA [Concomitant]
     Active Substance: LEVETIRACETAM
  6. CYTOMEL [Concomitant]
     Active Substance: LIOTHYRONINE SODIUM
  7. VALACYCLOVIR [Concomitant]
     Active Substance: VALACYCLOVIR HYDROCHLORIDE
  8. NEXIUM [Concomitant]
     Active Substance: ESOMEPRAZOLE MAGNESIUM
  9. FLUTICASONE [Concomitant]
     Active Substance: FLUTICASONE\FLUTICASONE PROPIONATE
  10. SYNTHROID [Concomitant]
     Active Substance: LEVOTHYROXINE SODIUM
  11. GAMASTAN S/D [Suspect]
     Active Substance: HUMAN IMMUNOGLOBULIN A\HUMAN IMMUNOGLOBULIN G
     Indication: IMMUNE SYSTEM DISORDER
     Route: 030
     Dates: start: 20160527, end: 20160829
  12. LORATIDINE [Concomitant]
     Active Substance: LORATADINE
  13. PERCOCET [Concomitant]
     Active Substance: ACETAMINOPHEN\OXYCODONE HYDROCHLORIDE

REACTIONS (4)
  - Fall [None]
  - Seizure [None]
  - Middle insomnia [None]
  - Head injury [None]

NARRATIVE: CASE EVENT DATE: 20160606
